FAERS Safety Report 18675294 (Version 1)
Quarter: 2020Q4

REPORT INFORMATION
  Report Type: Spontaneous
  Country: GB (occurrence: GB)
  Receive Date: 20201229
  Receipt Date: 20201229
  Transmission Date: 20210114
  Serious: Yes (Other)
  Sender: FDA-Public Use
  Company Number: GB-TEVA-2020-GB-1862508

PATIENT
  Age: 55 Year
  Sex: Female
  Weight: 50 kg

DRUGS (9)
  1. CEFALEXIN [Concomitant]
     Active Substance: CEPHALEXIN
     Dosage: 3RD LINE / PREGNANCY; FOR., 3 DOSAGE FORMS
     Dates: start: 20201130
  2. FOLIC ACID. [Concomitant]
     Active Substance: FOLIC ACID
     Dosage: 1 DOSAGE FORMS
     Dates: start: 20200805, end: 20201104
  3. COCODAMOL [Concomitant]
     Active Substance: ACETAMINOPHEN\CODEINE PHOSPHATE
     Dosage: 1-2 UP TO FOUR TIMES A DAY. NOT MORE THAN 8 IN 24 HOURS
     Dates: start: 20201127
  4. ADCAL [Concomitant]
     Dosage: 4DOSAGE FORMS
     Dates: start: 20200805, end: 20201104
  5. GABAPENTIN. [Concomitant]
     Active Substance: GABAPENTIN
     Dosage: 6 DOSAGE FORMS
     Dates: start: 20200805
  6. ZOLPIDEM [Concomitant]
     Active Substance: ZOLPIDEM TARTRATE
     Dosage: AT NIGHT AS REQUIRED, UNIT DOSE: 2 DOSAGE FORMS
     Dates: start: 20200805
  7. SERTRALINE [Concomitant]
     Active Substance: SERTRALINE HYDROCHLORIDE
     Dosage: 200 MG
     Dates: start: 20200805
  8. PANTOPRAZOLE [Concomitant]
     Active Substance: PANTOPRAZOLE
     Dosage: 1 DOSAGE FORMS
     Dates: start: 20200805
  9. CIPROFLOXACIN. [Suspect]
     Active Substance: CIPROFLOXACIN
     Dosage: FOR 7 DAYS,UNIT DOSE: 1000 MG
     Route: 065
     Dates: start: 20201127

REACTIONS (1)
  - Swelling [Recovering/Resolving]

NARRATIVE: CASE EVENT DATE: 20201130
